FAERS Safety Report 5527625-4 (Version None)
Quarter: 2007Q4

REPORT INFORMATION
  Report Type: 
  Country: None (occurrence: None)
  Receive Date: 20071123
  Receipt Date: 20071106
  Transmission Date: 20080405
  Serious: Yes (Other)
  Sender: FDA-Public Use
  Company Number: 2007US002849

PATIENT
  Age: 47 Year
  Sex: Male

DRUGS (10)
  1. AMBISOME [Suspect]
     Indication: BRONCHOPULMONARY ASPERGILLOSIS
     Dosage: 150 MG, UID/QD, IV NOS; 300 MG, UID/QD, IV NOS
     Route: 042
     Dates: start: 20070403, end: 20070410
  2. AMBISOME [Suspect]
     Indication: BRONCHOPULMONARY ASPERGILLOSIS
     Dosage: 150 MG, UID/QD, IV NOS; 300 MG, UID/QD, IV NOS
     Route: 042
     Dates: start: 20070411, end: 20070501
  3. MEROPEN (MEROPENEM) [Concomitant]
  4. VANCOMYCIN HYDROCHLORIDE [Concomitant]
  5. LANSOPRAZOLE [Concomitant]
  6. RED BLOOD CELLS [Concomitant]
  7. VFEND [Concomitant]
  8. PAZUFLOXACIN (PAZUFLOXACIN) [Concomitant]
  9. ARBEKACIN (ARBEKACIN) [Concomitant]
  10. PLATELETS [Concomitant]

REACTIONS (2)
  - CARDIAC FAILURE [None]
  - HYPOKALAEMIA [None]
